FAERS Safety Report 13080278 (Version 1)
Quarter: 2017Q1

REPORT INFORMATION
  Report Type: Spontaneous
  Country: DE (occurrence: DE)
  Receive Date: 20170103
  Receipt Date: 20170103
  Transmission Date: 20170428
  Serious: Yes (Other)
  Sender: FDA-Public Use
  Company Number: DE-PFIZER INC-2016602436

PATIENT
  Age: 34 Year
  Sex: Female
  Weight: 102 kg

DRUGS (22)
  1. NOXAFIL [Suspect]
     Active Substance: POSACONAZOLE
     Indication: ANTIFUNGAL PROPHYLAXIS
     Dosage: 200 MG, 3X/DAY, TRIMESTER: EXPOSURE UNKNOWN
     Route: 048
  2. VOMEX A [Concomitant]
     Active Substance: DIMENHYDRINATE
     Indication: PROPHYLAXIS OF NAUSEA AND VOMITING
     Dosage: 16.2. - 17.4.GW, 2 TRIMESTER
     Route: 042
     Dates: start: 20160308, end: 20160317
  3. DIFLUCAN [Suspect]
     Active Substance: FLUCONAZOLE
     Indication: ANTIFUNGAL PROPHYLAXIS
     Dosage: 400 MG, 1X/DAY, TRIMESTER: EXPOSURE UNKNOWN
     Route: 048
  4. ALLOPURINOL. [Suspect]
     Active Substance: ALLOPURINOL
     Indication: ACUTE PROMYELOCYTIC LEUKAEMIA
     Dosage: 300 MG, 1X/DAY, 17.4. - 17.4.GW, 2 TRIMESTER
     Route: 048
     Dates: start: 20160317, end: 20160317
  5. COTRIM FORTE [Concomitant]
     Active Substance: SULFAMETHOXAZOLE\TRIMETHOPRIM
     Indication: ANTIFUNGAL PROPHYLAXIS
     Dosage: 800/160MG 3XWEEK, 2 TRIMESTER
     Route: 048
  6. AMPHO-MORONAL [Concomitant]
     Active Substance: AMPHOTERICIN B
     Indication: ANTIFUNGAL PROPHYLAXIS
     Dosage: 16.2. - 17.4.GW, 2 TRIMESTER
     Route: 048
  7. PANTOZOL [Concomitant]
     Active Substance: PANTOPRAZOLE SODIUM
     Indication: GASTRITIS PROPHYLAXIS
     Dosage: 40 MG, 1X/DAY, 16.2. - 17.4.GW, 2 TRIMESTER
     Route: 042
     Dates: start: 20160308, end: 20160317
  8. MAGNESIUM VERLA /00648601/ [Concomitant]
     Active Substance: MAGNESIUM
     Indication: PROPHYLAXIS OF ABORTION
     Dosage: 17.4. - 17.4.GW, 2 TRIMESTER
     Route: 048
     Dates: start: 20160317, end: 20160317
  9. L-THYROXIN [Concomitant]
     Active Substance: LEVOTHYROXINE SODIUM
     Indication: HYPOTHYROIDISM
     Dosage: 75 UG, 1X/DAY, 0. - 17.4.GW, 1 TRIMESTER
     Route: 048
     Dates: start: 20151115, end: 20160317
  10. MCP [Concomitant]
     Active Substance: METOCLOPRAMIDE HYDROCHLORIDE
     Indication: PROPHYLAXIS OF NAUSEA AND VOMITING
     Dosage: ON DEMAND, TRIMESTER: EXPOSURE UNKNOWN
     Route: 042
  11. DAUNORUBICIN HCL [Suspect]
     Active Substance: DAUNORUBICIN HYDROCHLORIDE
     Indication: ACUTE PROMYELOCYTIC LEUKAEMIA
     Dosage: 120 MG, 1X/DAY, 16.2. - 28.1.GW, 2 TRIMESTER
     Route: 042
     Dates: start: 20160308, end: 20160530
  12. NATRIUMHYDROGENCARBONAT [Concomitant]
     Active Substance: SODIUM BICARBONATE
     Indication: URINE ALKALINISATION THERAPY
     Dosage: 16.2. - 17.4.GW, 2 TRIMESTER
     Route: 048
     Dates: start: 20160308, end: 20160317
  13. CLEXANE [Concomitant]
     Active Substance: ENOXAPARIN SODIUM
     Indication: THROMBOSIS PROPHYLAXIS
     Dosage: TERMINATED BEFORE WEEK 17 4/7, TRIMESTER UNKNOWN
     Route: 058
  14. BETAMETHASONE. [Concomitant]
     Active Substance: BETAMETHASONE
     Indication: MATERNAL THERAPY TO ENHANCE FOETAL LUNG MATURITY
     Dosage: 3 TRIMESTER
     Route: 065
  15. CYTARABINE. [Suspect]
     Active Substance: CYTARABINE
     Indication: ACUTE PROMYELOCYTIC LEUKAEMIA
     Dosage: 400 MG, 1X/DAY, 16.2. - 17.1.GW, 2 TRIMESTER
     Route: 042
     Dates: start: 20160308, end: 20160314
  16. ROCEPHIN [Concomitant]
     Active Substance: CEFTRIAXONE SODIUM
     Indication: ANTIBIOTIC PROPHYLAXIS
     Dosage: 2000 MG, 1X/DAY, 16.2. - 17.4.GW, 2 TRIMESTER
     Route: 042
     Dates: start: 20160308, end: 20160317
  17. ACICLOVIR [Concomitant]
     Active Substance: ACYCLOVIR
     Indication: ANTIVIRAL PROPHYLAXIS
     Dosage: 400 MG, 2X/DAY, 16.2. - 17.4.GW, 2 TRIMESTER
     Route: 048
     Dates: start: 20160308, end: 20160317
  18. PROGESTAN [Concomitant]
     Active Substance: PROGESTERONE
     Indication: PROPHYLAXIS OF ABORTION
     Dosage: 100 MG, 1X/DAY, 0. - 17.4.GW, 1 TRIMESTER
     Route: 067
     Dates: start: 20151115, end: 20160317
  19. PROGYNOVA 21 [Concomitant]
     Indication: PROPHYLAXIS OF ABORTION
     Dosage: 2 MG, 1X/DAY, 0. - 17.4.GW, 1 TRIMESTER
     Route: 048
     Dates: start: 20151115, end: 20160317
  20. CIPROFLOXACIN. [Concomitant]
     Active Substance: CIPROFLOXACIN
     Indication: ANTIBIOTIC PROPHYLAXIS
     Dosage: 500 MG, 2X/DAY, TRIMESTER: EXPOSURE UNKNOWN
     Route: 048
  21. ZOFRAN [Concomitant]
     Active Substance: ONDANSETRON HYDROCHLORIDE
     Indication: PROPHYLAXIS OF NAUSEA AND VOMITING
     Dosage: 8 MG, 3X/DAY, TRIMESTER: EXPOSURE UNKNOWN
     Route: 042
  22. VESANOID [Suspect]
     Active Substance: TRETINOIN
     Indication: ACUTE PROMYELOCYTIC LEUKAEMIA
     Dosage: 30 MG, 3X/DAY, 16.2. - 28.1.GW
     Route: 048
     Dates: start: 20160308, end: 20160530

REACTIONS (1)
  - Placental insufficiency [Unknown]
